FAERS Safety Report 25624672 (Version 1)
Quarter: 2025Q3

REPORT INFORMATION
  Report Type: Report from Study
  Country: US (occurrence: US)
  Receive Date: 20250730
  Receipt Date: 20250730
  Transmission Date: 20251021
  Serious: Yes (Hospitalization)
  Sender: ABBVIE
  Company Number: US-ABBVIE-6393527

PATIENT
  Age: 72 Year
  Sex: Male

DRUGS (2)
  1. VENCLEXTA [Suspect]
     Active Substance: VENETOCLAX
     Indication: Primary amyloidosis
     Route: 048
     Dates: end: 202502
  2. VENCLEXTA [Suspect]
     Active Substance: VENETOCLAX
     Indication: Primary amyloidosis
     Route: 048

REACTIONS (2)
  - Primary amyloidosis [Recovered/Resolved]
  - Off label use [Not Recovered/Not Resolved]

NARRATIVE: CASE EVENT DATE: 20250201
